FAERS Safety Report 13637557 (Version 2)
Quarter: 2017Q3

REPORT INFORMATION
  Report Type: Spontaneous
  Country: US (occurrence: US)
  Receive Date: 20170609
  Receipt Date: 20170711
  Transmission Date: 20171127
  Serious: Yes (Hospitalization)
  Sender: FDA-Public Use
  Company Number: US-ASTRAZENECA-2013BM07507

PATIENT
  Age: 79 Year
  Sex: Female
  Weight: 68.9 kg

DRUGS (5)
  1. LISINOPRIL. [Suspect]
     Active Substance: LISINOPRIL
     Indication: BLOOD PRESSURE ABNORMAL
     Route: 048
  2. BYETTA [Suspect]
     Active Substance: EXENATIDE
     Indication: TYPE 2 DIABETES MELLITUS
     Route: 058
  3. LIPITOR [Concomitant]
     Active Substance: ATORVASTATIN CALCIUM
     Indication: BLOOD CHOLESTEROL ABNORMAL
     Route: 048
  4. LANTUS [Concomitant]
     Active Substance: INSULIN GLARGINE
     Indication: TYPE 2 DIABETES MELLITUS
     Route: 058
  5. ATENOLOL. [Suspect]
     Active Substance: ATENOLOL
     Dosage: DOSE UNKNOWN
     Route: 065

REACTIONS (2)
  - Drug dose omission [Unknown]
  - Cardiac valve disease [Not Recovered/Not Resolved]

NARRATIVE: CASE EVENT DATE: 2016
